FAERS Safety Report 13127432 (Version 2)
Quarter: 2017Q1

REPORT INFORMATION
  Report Type: Spontaneous
  Country: US (occurrence: US)
  Receive Date: 20170118
  Receipt Date: 20170131
  Transmission Date: 20170428
  Serious: Yes (Hospitalization)
  Sender: FDA-Public Use
  Company Number: US-ACTELION-A-US2017-148523

PATIENT
  Age: 4 Year
  Sex: Female

DRUGS (4)
  1. SILDENAFIL. [Concomitant]
     Active Substance: SILDENAFIL
     Indication: PULMONARY HYPERTENSION
     Dosage: 10 MG, TID
     Dates: start: 20160215
  2. REMODULIN [Concomitant]
     Active Substance: TREPROSTINIL
     Dosage: 75 NG/KG, UNK
     Dates: start: 20160215
  3. TRACLEER [Suspect]
     Active Substance: BOSENTAN
     Indication: PULMONARY ARTERIAL HYPERTENSION
     Dosage: 31.25 MG, BID
     Route: 048
     Dates: start: 20160215
  4. REMODULIN [Concomitant]
     Active Substance: TREPROSTINIL
     Indication: PULMONARY HYPERTENSION
     Dosage: 61 NG/KG, PER MIN

REACTIONS (2)
  - Catheter management [Unknown]
  - Device related infection [Unknown]
